FAERS Safety Report 8038600-2 (Version None)
Quarter: 2012Q1

REPORT INFORMATION
  Report Type: 
  Country: None (occurrence: None)
  Receive Date: 20120111
  Receipt Date: 20111130
  Transmission Date: 20120608
  Serious: No
  Sender: FDA-Public Use
  Company Number: US-AMGEN-USASP2011063707

PATIENT
  Age: 54 Year
  Sex: Female

DRUGS (2)
  1. ENBREL [Suspect]
     Indication: PSORIATIC ARTHROPATHY
  2. ENBREL [Suspect]
     Indication: RHEUMATOID ARTHRITIS
     Dosage: 50 MG, QWK
     Dates: start: 20111107, end: 20111126

REACTIONS (8)
  - DIARRHOEA [None]
  - SINUS HEADACHE [None]
  - INFLUENZA [None]
  - SECRETION DISCHARGE [None]
  - PYREXIA [None]
  - CHILLS [None]
  - MALAISE [None]
  - PAIN [None]
